FAERS Safety Report 7435877-9 (Version None)
Quarter: 2011Q2

REPORT INFORMATION
  Report Type: 
  Country: None (occurrence: None)
  Receive Date: 20110425
  Receipt Date: 20110415
  Transmission Date: 20111010
  Serious: Yes (Hospitalization)
  Sender: FDA-Public Use
  Company Number: FR-ASTRAZENECA-2011SE22352

PATIENT
  Sex: Female

DRUGS (3)
  1. NEXIUM [Suspect]
     Route: 048
     Dates: start: 20110217, end: 20110302
  2. ASPEGIC 325 [Suspect]
     Route: 048
     Dates: start: 20110217, end: 20110302
  3. COLCHIMAX [Suspect]
     Route: 048
     Dates: start: 20110224, end: 20110228

REACTIONS (2)
  - CYTOLYTIC HEPATITIS [None]
  - PYREXIA [None]
